FAERS Safety Report 23686468 (Version 1)
Quarter: 2024Q1

REPORT INFORMATION
  Report Type: Other
  Country: PK (occurrence: None)
  Receive Date: 20240329
  Receipt Date: 20240329
  Transmission Date: 20240410
  Serious: Yes (Other)
  Sender: FDA-Public Use
  Company Number: PK-ROCHE-3530965

PATIENT
  Age: 27 Year
  Sex: Male

DRUGS (1)
  1. AVASTIN [Suspect]
     Active Substance: BEVACIZUMAB
     Indication: Colorectal cancer metastatic
     Route: 042
     Dates: start: 20230823, end: 20231127

REACTIONS (2)
  - Hepatectomy [Unknown]
  - Eye operation [Unknown]

NARRATIVE: CASE EVENT DATE: 20240320
